FAERS Safety Report 5775568 (Version 1)
Quarter: 2020Q3

REPORT INFORMATION
  Report Type: Report from Study
  Country: GB (occurrence: GB)
  Receive Date: 20050414
  Receipt Date: 20050414
  Transmission Date: 20201105
  Serious: Yes (Other)
  Sender: FDA-Public Use
  Company Number: 399199

PATIENT
  Age: 62 Year
  Sex: Male
  Weight: 89.3 kg

DRUGS (6)
  1. PRAVASTATIN. [Concomitant]
     Active Substance: PRAVASTATIN
  2. CAPECITABINE. [Suspect]
     Active Substance: CAPECITABINE
     Dosage: INTERMITTENT THERAPY OF 2 WEEKS TREATMENT FOLLOWED BY ONE WEEK REST IN A 3 WEEKS CYCLE.
     Route: 048
     Dates: start: 20041220
  3. AVASTIN [Suspect]
     Active Substance: BEVACIZUMAB
     Dosage: ON DAY 1 OF EACH 3 WEEK CYCLE.
     Route: 042
     Dates: start: 20041220, end: 20050321
  4. OXALIPLATIN. [Suspect]
     Active Substance: OXALIPLATIN
     Dosage: ACTUAL DOSE: 270 MG.  ON DAY ONE OF EVERY 3 WEEK CYCLE.
     Route: 042
     Dates: start: 20041220
  5. ATENOLOL. [Concomitant]
     Active Substance: ATENOLOL
  6. ASPIRIN. [Concomitant]
     Active Substance: ASPIRIN

REACTIONS (1)
  - Computerised tomogram thorax abnormal [Not Recovered/Not Resolved]

NARRATIVE: CASE EVENT DATE: 20050310
